FAERS Safety Report 8271219-7 (Version None)
Quarter: 2012Q2

REPORT INFORMATION
  Report Type: 
  Country: None (occurrence: None)
  Receive Date: 20120406
  Receipt Date: 20120328
  Transmission Date: 20120825
  Serious: Yes (Death, Hospitalization, Other)
  Sender: FDA-Public Use
  Company Number: ADR-2012-00629

PATIENT
  Age: 66 Year
  Sex: Male

DRUGS (1)
  1. BACLOFEN [Suspect]
     Indication: MUSCLE SPASTICITY
     Dosage: SEE B5
     Dates: start: 20080130, end: 20111215

REACTIONS (11)
  - DISSEMINATED INTRAVASCULAR COAGULATION [None]
  - CEREBELLAR INFARCTION [None]
  - PAIN IN EXTREMITY [None]
  - DRUG INEFFECTIVE [None]
  - HYPOAESTHESIA [None]
  - DYSPHONIA [None]
  - APHASIA [None]
  - ALTERED STATE OF CONSCIOUSNESS [None]
  - BRAIN STEM INFARCTION [None]
  - CONDITION AGGRAVATED [None]
  - PNEUMONIA [None]
